FAERS Safety Report 7213529-8 (Version None)
Quarter: 2011Q1

REPORT INFORMATION
  Report Type: 
  Country: None (occurrence: None)
  Receive Date: 20110106
  Receipt Date: 20110106
  Transmission Date: 20110831
  Serious: Yes (Death, Hospitalization, Other)
  Sender: FDA-Public Use
  Company Number: FR-AMGEN-FRASP2010007298

PATIENT

DRUGS (6)
  1. FOLINIQUE ACIDE [Concomitant]
     Route: 042
  2. FLUOROURACILE [Concomitant]
     Route: 042
  3. NAPROSYN [Concomitant]
     Dosage: 1000 MG, UNK
     Route: 048
  4. UFT [Concomitant]
     Route: 048
  5. VECTIBIX [Suspect]
     Indication: COLON CANCER METASTATIC
     Dosage: 250 MG, UNK
     Route: 042
     Dates: start: 20100630, end: 20101029
  6. LAMALINE                           /00764901/ [Concomitant]
     Route: 048

REACTIONS (4)
  - AORTIC DISSECTION [None]
  - PARAESTHESIA [None]
  - BACK PAIN [None]
  - DILATATION ATRIAL [None]
